FAERS Safety Report 9149625 (Version 2)
Quarter: 2015Q2

REPORT INFORMATION
  Report Type: Spontaneous
  Country: DZ (occurrence: DZ)
  Receive Date: 20130308
  Receipt Date: 20150423
  Transmission Date: 20150821
  Serious: Yes (Death, Other)
  Sender: FDA-Public Use
  Company Number: DZ-PFIZER INC-2005004042

PATIENT
  Age: 55 Year
  Sex: Female

DRUGS (3)
  1. CELEBREX [Suspect]
     Active Substance: CELECOXIB
     Indication: OSTEOARTHRITIS
     Dosage: 200 MG 2X/DAY
     Route: 048
     Dates: start: 2000
  2. APRANAX [Concomitant]
     Active Substance: NAPROXEN
  3. LUTENYL [Concomitant]
     Active Substance: NOMEGESTROL ACETATE

REACTIONS (3)
  - Dry mouth [Unknown]
  - Death [Fatal]
  - Hypothermia [Unknown]

NARRATIVE: CASE EVENT DATE: 2000
